FAERS Safety Report 19884129 (Version 1)
Quarter: 2021Q3

REPORT INFORMATION
  Report Type: Spontaneous
  Country: CN (occurrence: CN)
  Receive Date: 20210927
  Receipt Date: 20210927
  Transmission Date: 20211014
  Serious: Yes (Hospitalization)
  Sender: FDA-Public Use
  Company Number: CN-BAXTER-2021BAX026672

PATIENT
  Age: 8 Year
  Sex: Male
  Weight: 45 kg

DRUGS (8)
  1. 0.9% SODIUM CHLORIDE INJECTION [Suspect]
     Active Substance: SODIUM CHLORIDE
     Indication: MEDICATION DILUTION
     Dosage: NS 100ML + CYCLOPHOSPHAMIDE 720 MG
     Route: 041
     Dates: start: 20210520, end: 20210528
  2. VINCRISTINE SULFATE. [Suspect]
     Active Substance: VINCRISTINE SULFATE
     Indication: BRAIN NEOPLASM MALIGNANT
     Dosage: NS 10ML + VINCRISTINE SULFATE 1.4 MG
     Route: 042
     Dates: start: 20210520, end: 20210528
  3. ENDOXAN [Suspect]
     Active Substance: CYCLOPHOSPHAMIDE
     Indication: BRAIN NEOPLASM MALIGNANT
     Dosage: NS 100ML + CYCLOPHOSPHAMIDE 720 MG
     Route: 041
     Dates: start: 20210520, end: 20210528
  4. ENDOXAN [Suspect]
     Active Substance: CYCLOPHOSPHAMIDE
     Dosage: DOSE RE?INTRODUCED, NS + CYCLOPHOSPHAMIDE
     Route: 041
  5. VINCRISTINE SULFATE. [Suspect]
     Active Substance: VINCRISTINE SULFATE
     Dosage: DOSE RE?INTRODUCED; VINCRISTINE SULFATE + NS
     Route: 042
  6. 0.9% SODIUM CHLORIDE INJECTION [Suspect]
     Active Substance: SODIUM CHLORIDE
     Dosage: DOSE RE?INTRODUCED; VINCRISTINE + NS
     Route: 042
  7. 0.9% SODIUM CHLORIDE INJECTION [Suspect]
     Active Substance: SODIUM CHLORIDE
     Dosage: DOSE RE?INTRODUCED; NS + CYCLOPHOSPHAMIDE
     Route: 041
  8. 0.9% SODIUM CHLORIDE INJECTION [Suspect]
     Active Substance: SODIUM CHLORIDE
     Dosage: NS 10ML + VINCRISTINE SULFATE 1.4 MG
     Route: 042
     Dates: start: 20210520, end: 20210528

REACTIONS (2)
  - White blood cell count decreased [Recovered/Resolved]
  - Thrombocytopenia [Recovered/Resolved]

NARRATIVE: CASE EVENT DATE: 20210603
